FAERS Safety Report 23621563 (Version 1)
Quarter: 2024Q1

REPORT INFORMATION
  Report Type: Spontaneous
  Country: FR (occurrence: FR)
  Receive Date: 20240312
  Receipt Date: 20240312
  Transmission Date: 20240410
  Serious: Yes (Death)
  Sender: FDA-Public Use
  Company Number: FR-AFSSAPS-AN2023001497

PATIENT
  Age: 64 Year
  Sex: Female

DRUGS (4)
  1. PAROXETINE [Interacting]
     Active Substance: PAROXETINE
     Indication: Depression
     Dosage: 20 MILLIGRAM, DAILY
     Route: 048
     Dates: end: 20231109
  2. KEYTRUDA [Suspect]
     Active Substance: PEMBROLIZUMAB
     Indication: Endometrial adenocarcinoma
     Dosage: 1 DOSAGE FORM, IN TOTAL
     Route: 040
     Dates: start: 20231020, end: 20231120
  3. LENVATINIB [Interacting]
     Active Substance: LENVATINIB
     Indication: Endometrial cancer metastatic
     Dosage: 1 DOSAGE FORM, DAILY
     Route: 048
     Dates: start: 20231024, end: 20231107
  4. INNOHEP [Interacting]
     Active Substance: TINZAPARIN SODIUM
     Indication: Thrombosis prophylaxis
     Dosage: 1 DOSAGE FORM, DAILY
     Route: 058
     Dates: end: 20231109

REACTIONS (2)
  - Gastrointestinal haemorrhage [Fatal]
  - Drug interaction [Fatal]

NARRATIVE: CASE EVENT DATE: 20231109
